FAERS Safety Report 4625685-6 (Version None)
Quarter: 2005Q2

REPORT INFORMATION
  Report Type: 
  Country: None (occurrence: None)
  Receive Date: 20050404
  Receipt Date: 20050323
  Transmission Date: 20051028
  Serious: Yes (Other)
  Sender: FDA-Public Use
  Company Number: US-JNJFOC-20050104231

PATIENT
  Sex: Female
  Weight: 79.83 kg

DRUGS (14)
  1. REMICADE [Suspect]
     Route: 042
  2. REMICADE [Suspect]
     Indication: CROHN'S DISEASE
     Route: 042
  3. ESTRADIOL [Concomitant]
  4. ASPIRIN [Concomitant]
  5. EFFEXOR [Concomitant]
  6. LASIX [Concomitant]
  7. CELEXA [Concomitant]
  8. TOPROL-XL [Concomitant]
  9. PRIMIDONE [Concomitant]
     Dosage: 1/2 AM AND 1 HOUR OF SLEEP
  10. SERAX [Concomitant]
     Dosage: 1-2 AT HOUR OF SLEEP
  11. LISINOPRIL [Concomitant]
  12. FLEXERIL [Concomitant]
  13. ULTRAM [Concomitant]
     Dosage: 1-2 EVERY 4-6 HOURS
  14. CIPROFLOXACIN HCL [Concomitant]

REACTIONS (3)
  - MITRAL VALVE INCOMPETENCE [None]
  - MITRAL VALVE PROLAPSE [None]
  - TRICUSPID VALVE INCOMPETENCE [None]
